FAERS Safety Report 8396549-X (Version None)
Quarter: 2012Q2

REPORT INFORMATION
  Report Type: 
  Country: None (occurrence: None)
  Receive Date: 20120530
  Receipt Date: 20120522
  Transmission Date: 20120825
  Serious: Yes (Life-Threatening, Hospitalization, Other)
  Sender: FDA-Public Use
  Company Number: DE-PFIZER INC-2012124936

PATIENT
  Age: 62 Year
  Sex: Female
  Weight: 61 kg

DRUGS (2)
  1. FLUDARABINE PHOSPHATE [Suspect]
     Indication: CHRONIC MYELOID LEUKAEMIA
     Dosage: 25 MG/M2, CYCLIC, DAILY FOR 4 DAYS
     Dates: start: 20030601
  2. CYCLOPHOSPHAMIDE [Suspect]
     Indication: CHRONIC MYELOID LEUKAEMIA
     Dosage: CYCLIC
     Dates: start: 20030101

REACTIONS (6)
  - PNEUMONIA [None]
  - THROMBOCYTOPENIA [None]
  - PYREXIA [None]
  - ANAEMIA [None]
  - SECONDARY IMMUNODEFICIENCY [None]
  - RETINAL HAEMORRHAGE [None]
